FAERS Safety Report 8085138-2 (Version None)
Quarter: 2012Q1

REPORT INFORMATION
  Report Type: 
  Country: None (occurrence: None)
  Receive Date: 20120128
  Receipt Date: 20110314
  Transmission Date: 20120608
  Serious: No
  Sender: FDA-Public Use
  Company Number: US-ABBOTT-11P-163-0711308-00

PATIENT
  Sex: Male
  Weight: 74.91 kg

DRUGS (5)
  1. HUMIRA [Suspect]
     Indication: CROHN'S DISEASE
     Dosage: LOADING DOSE
     Dates: start: 20110311
  2. IMURAN [Concomitant]
     Indication: CROHN'S DISEASE
  3. POTASSIUM [Concomitant]
     Indication: MINERAL SUPPLEMENTATION
  4. HUMIRA [Suspect]
     Dates: start: 20110311
  5. LOMOTIL [Concomitant]
     Indication: CROHN'S DISEASE

REACTIONS (3)
  - DYSPNOEA [None]
  - PAIN IN EXTREMITY [None]
  - CHEST DISCOMFORT [None]
